FAERS Safety Report 5526518-6 (Version None)
Quarter: 2007Q4

REPORT INFORMATION
  Report Type: 
  Country: None (occurrence: None)
  Receive Date: 20071127
  Receipt Date: 20071112
  Transmission Date: 20080405
  Serious: Yes (Hospitalization)
  Sender: FDA-Public Use
  Company Number: GB-ELI_LILLY_AND_COMPANY-GB200711003182

PATIENT
  Age: 50 Year
  Sex: Female

DRUGS (2)
  1. GEMZAR [Suspect]
     Dosage: UNK, UNKNOWN
     Route: 042
     Dates: start: 20071015, end: 20071022
  2. NAVELBINE [Concomitant]
     Dosage: UNK, UNKNOWN
     Route: 065
     Dates: start: 20071015, end: 20071022

REACTIONS (1)
  - ABDOMINAL PAIN [None]
